FAERS Safety Report 10413155 (Version 3)
Quarter: 2014Q3

REPORT INFORMATION
  Report Type: Spontaneous
  Country: DE (occurrence: DE)
  Receive Date: 20140827
  Receipt Date: 20140928
  Transmission Date: 20150326
  Serious: Yes (Life-Threatening, Other)
  Sender: FDA-Public Use
  Company Number: DE-BRISTOL-MYERS SQUIBB COMPANY-21291307

PATIENT
  Age: 86 Year
  Sex: Female
  Weight: 76 kg

DRUGS (11)
  1. RAMIPRIL. [Suspect]
     Active Substance: RAMIPRIL
  2. PREDNISOLONE. [Suspect]
     Active Substance: PREDNISOLONE
  3. OXAZEPAM. [Suspect]
     Active Substance: OXAZEPAM
  4. VALORON [Suspect]
     Active Substance: TILIDINE HYDROCHLORIDE
  5. IBUPROFEN. [Concomitant]
     Active Substance: IBUPROFEN
  6. CITALOPRAM [Suspect]
     Active Substance: CITALOPRAM HYDROBROMIDE
  7. FUROSEMIDE. [Suspect]
     Active Substance: FUROSEMIDE
  8. MELPERONE HCL [Suspect]
     Active Substance: MELPERONE HYDROCHLORIDE
  9. ELIQUIS [Suspect]
     Active Substance: APIXABAN
     Indication: CEREBROVASCULAR ACCIDENT PROPHYLAXIS
     Dosage: TABLET?DOSING SCHME OF1-0-1?DFOSE REDUCED: 1.25 - 0 -1.25
     Dates: start: 201405
  10. PANTOPRAZOLE [Suspect]
     Active Substance: PANTOPRAZOLE SODIUM
  11. EXELON [Suspect]
     Active Substance: RIVASTIGMINE TARTRATE

REACTIONS (3)
  - Contusion [Recovering/Resolving]
  - Drug level increased [Unknown]
  - Off label use [Unknown]

NARRATIVE: CASE EVENT DATE: 201406
